FAERS Safety Report 4423027-2 (Version None)
Quarter: 2004Q3

REPORT INFORMATION
  Report Type: 
  Country: None (occurrence: None)
  Receive Date: 20040811
  Receipt Date: 20040730
  Transmission Date: 20050211
  Serious: Yes (Other)
  Sender: FDA-Public Use
  Company Number: FR-JNJFOC-20040702402

PATIENT
  Age: 62 Year
  Sex: Female
  Weight: 90 kg

DRUGS (3)
  1. EPITOMAX [Suspect]
     Indication: EPILEPSY
     Route: 049
  2. SEGLOR [Concomitant]
  3. EFFEXOR [Concomitant]
     Indication: DEPRESSION

REACTIONS (5)
  - ANXIETY [None]
  - COMA [None]
  - DEHYDRATION [None]
  - PERSECUTORY DELUSION [None]
  - WEIGHT DECREASED [None]
